FAERS Safety Report 8095430-3 (Version None)
Quarter: 2012Q1

REPORT INFORMATION
  Report Type: 
  Country: None (occurrence: None)
  Receive Date: 20120129
  Receipt Date: 20111229
  Transmission Date: 20120608
  Serious: No
  Sender: FDA-Public Use
  Company Number: US-ABBOTT-11P-163-0887538-00

PATIENT
  Sex: Female
  Weight: 77.18 kg

DRUGS (5)
  1. HUMIRA [Suspect]
     Dosage: INITIAL DOSE OF 160MG.
     Dates: end: 20110727
  2. HUMIRA [Suspect]
     Indication: CROHN'S DISEASE
     Dates: start: 20110824
  3. FLUCONAZOLE [Concomitant]
     Indication: PRODUCT USED FOR UNKNOWN INDICATION
  4. UNKNOWN BIRTH CONTROL [Concomitant]
     Indication: CONTRACEPTION
  5. HUMIRA [Suspect]
     Dosage: SECOND DOSE 2 WEEKS AFTER FIRST.
     Dates: start: 20110810, end: 20110810

REACTIONS (4)
  - INJECTION SITE PRURITUS [None]
  - INJECTION SITE PAPULE [None]
  - INJECTION SITE PAIN [None]
  - INJECTION SITE REACTION [None]
